FAERS Safety Report 26173275 (Version 1)
Quarter: 2025Q4

REPORT INFORMATION
  Report Type: Spontaneous
  Country: EU (occurrence: EU)
  Receive Date: 20251218
  Receipt Date: 20251218
  Transmission Date: 20260117
  Serious: Yes (Hospitalization, Disabling, Other)
  Sender: SANOFI AVENTIS
  Company Number: None

PATIENT
  Age: 60 Year
  Sex: Female
  Weight: 83 kg

DRUGS (6)
  1. VALPROATE SODIUM [Interacting]
     Active Substance: VALPROATE SODIUM
     Indication: Epilepsy
     Dosage: 1000 MG, BID
     Route: 048
     Dates: start: 20080801, end: 20091015
  2. RIFAMPIN [Interacting]
     Active Substance: RIFAMPIN
     Indication: Tuberculosis of central nervous system
     Dosage: 600 MG, QD
     Dates: start: 2008, end: 2009
  3. ISONIAZID [Concomitant]
     Active Substance: ISONIAZID
     Dosage: UNK
     Dates: start: 2008
  4. PYRAZINAMIDE [Concomitant]
     Active Substance: PYRAZINAMIDE
     Dosage: 1500 MG, QD (0-0-3)
     Dates: start: 2008
  5. RITUXIMAB [Concomitant]
     Active Substance: RITUXIMAB
     Indication: Immunochemotherapy
     Dosage: 1 G
     Dates: start: 20080822
  6. RITUXIMAB [Concomitant]
     Active Substance: RITUXIMAB
     Dosage: UNK
     Dates: start: 20080905

REACTIONS (8)
  - Neuromyopathy [Recovered/Resolved with Sequelae]
  - Cerebral atrophy [Recovered/Resolved with Sequelae]
  - Cognitive disorder [Recovered/Resolved with Sequelae]
  - Toxicity to various agents [Unknown]
  - Movement disorder [Recovered/Resolved with Sequelae]
  - Mobility decreased [Recovered/Resolved with Sequelae]
  - Bedridden [Unknown]
  - Wrong product administered [Unknown]

NARRATIVE: CASE EVENT DATE: 20090101
